FAERS Safety Report 4350613-0 (Version None)
Quarter: 2004Q2

REPORT INFORMATION
  Report Type: 
  Country: None (occurrence: None)
  Receive Date: 20040427
  Receipt Date: 20040415
  Transmission Date: 20050107
  Serious: Yes (Other)
  Sender: FDA-Public Use
  Company Number: 2004209896AU

PATIENT
  Sex: Female

DRUGS (1)
  1. XANAX [Suspect]
     Indication: PANIC ATTACK
     Dosage: SEE IMAGE
     Route: 048
     Dates: start: 19980101

REACTIONS (5)
  - CHEST DISCOMFORT [None]
  - DEPENDENCE [None]
  - HEART RATE INCREASED [None]
  - PANIC ATTACK [None]
  - TREMOR [None]
